FAERS Safety Report 14446954 (Version 1)
Quarter: 2018Q1

REPORT INFORMATION
  Report Type: Spontaneous
  Country: PL (occurrence: PL)
  Receive Date: 20180126
  Receipt Date: 20180126
  Transmission Date: 20180509
  Serious: Yes (Disabling, Other)
  Sender: FDA-Public Use
  Company Number: PL-SA-2018SA018416

PATIENT
  Age: 55 Year

DRUGS (5)
  1. OXYCODONE [Suspect]
     Active Substance: OXYCODONE
     Indication: PAIN
     Route: 065
     Dates: start: 201307
  2. GEMCITABINE [Concomitant]
     Active Substance: GEMCITABINE\GEMCITABINE HYDROCHLORIDE
     Indication: ADENOCARCINOMA PANCREAS
     Dosage: UNK UNK, CYCLICAL (DAYS 1,8,15 EVERY 28 DAYS), 12 CYCLES
     Route: 065
  3. OXALIPLATIN. [Suspect]
     Active Substance: OXALIPLATIN
     Indication: ADENOCARCINOMA PANCREAS
     Route: 065
     Dates: start: 201309, end: 201404
  4. OXYCODONE [Suspect]
     Active Substance: OXYCODONE
     Indication: PAIN
     Route: 065
  5. OXYCODONE [Suspect]
     Active Substance: OXYCODONE
     Indication: PAIN
     Route: 065
     Dates: start: 201306, end: 201307

REACTIONS (3)
  - Paraesthesia [Recovered/Resolved]
  - Neuropathy peripheral [Recovered/Resolved]
  - Constipation [Recovered/Resolved]
